FAERS Safety Report 7578454-1 (Version None)
Quarter: 2011Q2

REPORT INFORMATION
  Report Type: 
  Country: None (occurrence: None)
  Receive Date: 20110628
  Receipt Date: 20110621
  Transmission Date: 20111010
  Serious: Yes (Hospitalization)
  Sender: FDA-Public Use
  Company Number: US-AMGEN-USACT2011031504

PATIENT
  Age: 47 Year
  Sex: Female

DRUGS (6)
  1. FILGRASTIM [Suspect]
     Indication: BREAST CANCER
     Dosage: 5 A?G/KG, UNK
     Route: 058
     Dates: start: 20101217
  2. PEGFILGRASTIM [Suspect]
     Indication: BREAST CANCER
     Dosage: 6 MG, UNK
     Route: 058
     Dates: start: 20101217
  3. DOXORUBICIN HCL [Concomitant]
     Indication: BREAST CANCER
     Dosage: 6 MG/M2, UNK
     Route: 042
     Dates: start: 20101217
  4. CYCLOPHOSPHAMIDE [Concomitant]
     Dosage: 600 MG/M2, UNK
     Route: 042
     Dates: start: 20101217
  5. PACLITAXEL [Concomitant]
     Indication: BREAST CANCER
     Dosage: 80 MG/M2, UNK
     Route: 042
  6. BEVACIZUMAB [Concomitant]
     Dosage: UNK UNK, Q2WK
     Route: 042
     Dates: start: 20101217

REACTIONS (5)
  - ABDOMINAL PAIN [None]
  - NAUSEA [None]
  - SINUSITIS [None]
  - VOMITING [None]
  - CHEST PAIN [None]
